FAERS Safety Report 13050921 (Version 1)
Quarter: 2016Q4

REPORT INFORMATION
  Report Type: Spontaneous
  Country: FR (occurrence: FR)
  Receive Date: 20161221
  Receipt Date: 20161221
  Transmission Date: 20170207
  Serious: Yes (Hospitalization)
  Sender: FDA-Public Use
  Company Number: FR-PFIZER INC-2016585914

PATIENT
  Age: 17 Year
  Sex: Female

DRUGS (6)
  1. IBUPROFEN. [Suspect]
     Active Substance: IBUPROFEN
     Indication: SUICIDE ATTEMPT
     Dosage: 8000 MG, SINGLE
     Route: 048
     Dates: start: 20160601, end: 20160601
  2. PONSTYL [Suspect]
     Active Substance: MEFENAMIC ACID
     Indication: SUICIDE ATTEMPT
     Dosage: 5000 MG, SINGLE
     Route: 048
     Dates: start: 20160601, end: 20160601
  3. TRIMEBUTINE [Suspect]
     Active Substance: TRIMEBUTINE
     Indication: SUICIDE ATTEMPT
     Dosage: 6000 MG, SINGLE
     Route: 048
     Dates: start: 20160601, end: 20160601
  4. AMOXICILLIN. [Suspect]
     Active Substance: AMOXICILLIN
     Indication: SUICIDE ATTEMPT
     Dosage: 38 G, SINGLE
     Route: 048
     Dates: start: 20160601, end: 20160601
  5. LORATADINE. [Suspect]
     Active Substance: LORATADINE
     Indication: SUICIDE ATTEMPT
     Dosage: 150 MG, SINGLE
     Route: 048
     Dates: start: 20160601, end: 20160601
  6. PARACETAMOL [Suspect]
     Active Substance: ACETAMINOPHEN
     Indication: SUICIDE ATTEMPT
     Dosage: 48 G, SINGLE
     Dates: start: 20160601, end: 20160601

REACTIONS (1)
  - Prothrombin time shortened [Recovered/Resolved]

NARRATIVE: CASE EVENT DATE: 20160601
